FAERS Safety Report 9549015 (Version 3)
Quarter: 2013Q4

REPORT INFORMATION
  Report Type: Spontaneous
  Country: US (occurrence: US)
  Receive Date: 20130924
  Receipt Date: 20131129
  Transmission Date: 20140711
  Serious: No
  Sender: FDA-Public Use
  Company Number: US-PFIZER INC-2013273493

PATIENT
  Age: 55 Year
  Sex: Female

DRUGS (6)
  1. PREMARIN [Suspect]
     Indication: MENOPAUSAL SYMPTOMS
     Dosage: UNK
     Route: 067
  2. PREMARIN [Suspect]
     Indication: HOT FLUSH
  3. PREMARIN [Suspect]
     Indication: HYPERHIDROSIS
  4. CELEBREX [Concomitant]
     Indication: OSTEOARTHRITIS
     Dosage: UNK, 2X/DAY
  5. CELEBREX [Concomitant]
     Indication: FIBROMYALGIA
  6. ZOLOFT [Concomitant]
     Dosage: UNK

REACTIONS (2)
  - Hot flush [Unknown]
  - Hyperhidrosis [Unknown]
